FAERS Safety Report 13550334 (Version 1)
Quarter: 2017Q2

REPORT INFORMATION
  Report Type: Spontaneous
  Country: DE (occurrence: DE)
  Receive Date: 20170516
  Receipt Date: 20170516
  Transmission Date: 20170830
  Serious: Yes (Other)
  Sender: FDA-Public Use
  Company Number: DE-HQ SPECIALTY-DE-2017INT000152

PATIENT
  Age: 65 Year
  Sex: Female

DRUGS (8)
  1. LORAZEPAM. [Suspect]
     Active Substance: LORAZEPAM
     Indication: PARTIAL SEIZURES
     Dosage: 1 MG, QD, P.R.N
  2. ONDANSETRON [Concomitant]
     Active Substance: ONDANSETRON
     Indication: PROPHYLAXIS OF NAUSEA AND VOMITING
     Dosage: 8 MG, QD
  3. VALPROIC ACID. [Suspect]
     Active Substance: VALPROIC ACID
     Indication: PARTIAL SEIZURES
  4. CLOBAZAM [Suspect]
     Active Substance: CLOBAZAM
     Indication: PARTIAL SEIZURES
     Dosage: 5 MG, QD PRN
  5. LEVETIRACETAM IN SODIUM CHLORIDE INJECTION [Suspect]
     Active Substance: LEVETIRACETAM
     Dosage: 2750 MG, QD ESCALATED DOSE
     Dates: start: 2014
  6. TEMOZOLOMIDE. [Suspect]
     Active Substance: TEMOZOLOMIDE
     Indication: GLIOBLASTOMA MULTIFORME
     Dosage: 50 MG/M2, QD
     Route: 048
  7. ARTESUNATE [Suspect]
     Active Substance: ARTESUNATE
     Indication: MALARIA PROPHYLAXIS
     Dosage: 200 MG, QD
     Dates: start: 20150920, end: 20151020
  8. LEVETIRACETAM IN SODIUM CHLORIDE INJECTION [Suspect]
     Active Substance: LEVETIRACETAM
     Indication: PARTIAL SEIZURES
     Dosage: 1000 MG, QD STARTING DOSE
     Dates: start: 2014

REACTIONS (4)
  - Drug interaction [Recovered/Resolved]
  - Herbal interaction [Recovered/Resolved]
  - Toxicity to various agents [Recovered/Resolved]
  - Hepatotoxicity [Recovered/Resolved]
